FAERS Safety Report 20771294 (Version 2)
Quarter: 2022Q2

REPORT INFORMATION
  Report Type: Report from Study
  Country: US (occurrence: None)
  Receive Date: 20220429
  Receipt Date: 20220503
  Transmission Date: 20220721
  Serious: Yes (Other)
  Sender: FDA-Public Use
  Company Number: US-Eisai Medical Research-EC-2022-113816

PATIENT
  Age: 74 Year
  Sex: Female
  Weight: 102.06 kg

DRUGS (25)
  1. LENVIMA [Suspect]
     Active Substance: LENVATINIB
     Indication: Endometrial cancer
     Route: 048
     Dates: start: 20220204, end: 2022
  2. AMBIEN [Concomitant]
     Active Substance: ZOLPIDEM TARTRATE
  3. ATORVASTATIN [Concomitant]
     Active Substance: ATORVASTATIN
  4. CELEBREX [Concomitant]
     Active Substance: CELECOXIB
  5. DILTIAZEM [Concomitant]
     Active Substance: DILTIAZEM
  6. ELIQUIS [Concomitant]
     Active Substance: APIXABAN
  7. ESOMEPRAZOLE [Concomitant]
     Active Substance: ESOMEPRAZOLE
  8. HYDROCHLOROTHIAZIDE [Concomitant]
     Active Substance: HYDROCHLOROTHIAZIDE
  9. LANTUS [Concomitant]
     Active Substance: INSULIN GLARGINE
  10. LEVOTHYROXINE [Concomitant]
     Active Substance: LEVOTHYROXINE
  11. LEXAPRO [Concomitant]
     Active Substance: ESCITALOPRAM OXALATE
  12. LORATADINE [Concomitant]
     Active Substance: LORATADINE
  13. NITROFURANTOIN [Concomitant]
     Active Substance: NITROFURANTOIN
  14. QUETIAPINE [Concomitant]
     Active Substance: QUETIAPINE
  15. SIMVASTATIN [Concomitant]
     Active Substance: SIMVASTATIN
  16. TERAZOSIN [Concomitant]
     Active Substance: TERAZOSIN HYDROCHLORIDE
  17. TRAMADOL [Concomitant]
     Active Substance: TRAMADOL
  18. TRULICITY [Concomitant]
     Active Substance: DULAGLUTIDE
  19. VALSARTAN [Concomitant]
     Active Substance: VALSARTAN
  20. VITAMINS [Concomitant]
     Active Substance: VITAMINS
  21. ALEVE [Concomitant]
     Active Substance: NAPROXEN SODIUM
  22. COLESTIPOL [Concomitant]
     Active Substance: COLESTIPOL
  23. LOSARTAN [Concomitant]
     Active Substance: LOSARTAN
  24. MONTELUKAST [Concomitant]
     Active Substance: MONTELUKAST SODIUM
  25. TYLENOL [Concomitant]
     Active Substance: ACETAMINOPHEN

REACTIONS (1)
  - Seizure [Unknown]

NARRATIVE: CASE EVENT DATE: 20220101
